FAERS Safety Report 13573366 (Version 2)
Quarter: 2017Q3

REPORT INFORMATION
  Report Type: Report from Study
  Country: CA (occurrence: CA)
  Receive Date: 20170523
  Receipt Date: 20170914
  Transmission Date: 20171127
  Serious: Yes (Hospitalization, Other)
  Sender: FDA-Public Use
  Company Number: CA-AMGEN-CANSL2017076267

PATIENT
  Age: 29 Year
  Sex: Male

DRUGS (3)
  1. NPLATE [Suspect]
     Active Substance: ROMIPLOSTIM
     Indication: PRODUCT USED FOR UNKNOWN INDICATION
     Dosage: 250 MUG(0.5 ML), UNK
     Route: 065
     Dates: start: 20151221
  2. NPLATE [Suspect]
     Active Substance: ROMIPLOSTIM
     Dosage: 500 MUG/ML, UNK
     Route: 065
     Dates: start: 20151221
  3. NPLATE [Suspect]
     Active Substance: ROMIPLOSTIM
     Dosage: 100 MUG, UNK
     Route: 065
     Dates: start: 201705

REACTIONS (7)
  - Nasopharyngitis [Unknown]
  - Haemolysis [Unknown]
  - Neutropenia [Unknown]
  - Platelet count decreased [Unknown]
  - Malaise [Unknown]
  - Platelet count increased [Unknown]
  - Haemoglobin decreased [Unknown]

NARRATIVE: CASE EVENT DATE: 201705
